FAERS Safety Report 7303873-8 (Version None)
Quarter: 2011Q1

REPORT INFORMATION
  Report Type: 
  Country: None (occurrence: None)
  Receive Date: 20110221
  Receipt Date: 20110214
  Transmission Date: 20110831
  Serious: Yes (Other)
  Sender: FDA-Public Use
  Company Number: B0696137A

PATIENT
  Sex: Male
  Weight: 65 kg

DRUGS (3)
  1. IMMUNE GLOBULIN INTRAVENOUS (HUMAN) [Concomitant]
     Dosage: 30G PER DAY
     Route: 042
     Dates: start: 20100901, end: 20101231
  2. REVOLADE [Suspect]
     Indication: IDIOPATHIC THROMBOCYTOPENIC PURPURA
     Route: 048
     Dates: start: 20100928, end: 20101129
  3. PREDNISOLONE [Concomitant]

REACTIONS (4)
  - GLOMERULONEPHRITIS [None]
  - BLOOD CREATININE INCREASED [None]
  - ANTINUCLEAR ANTIBODY POSITIVE [None]
  - KIDNEY SMALL [None]
